FAERS Safety Report 6654375-3 (Version None)
Quarter: 2010Q1

REPORT INFORMATION
  Report Type: 
  Country: None (occurrence: None)
  Receive Date: 20100326
  Receipt Date: 20100318
  Transmission Date: 20100710
  Serious: Yes (Other)
  Sender: FDA-Public Use
  Company Number: DE-PFIZER INC-2010034922

PATIENT
  Age: 27 Year
  Sex: Female

DRUGS (1)
  1. SAYANA [Suspect]
     Dosage: UNK
     Dates: start: 20100105

REACTIONS (2)
  - INJECTION SITE HAEMATOMA [None]
  - INJECTION SITE NECROSIS [None]
